FAERS Safety Report 19587779 (Version 3)
Quarter: 2022Q3

REPORT INFORMATION
  Report Type: Report from Study
  Country: JP (occurrence: JP)
  Receive Date: 20210721
  Receipt Date: 20220802
  Transmission Date: 20221026
  Serious: Yes (Death, Other)
  Sender: FDA-Public Use
  Company Number: JP-BAYER-2021-176115

PATIENT
  Age: 88 Year
  Sex: Female

DRUGS (6)
  1. ADEMPAS [Suspect]
     Active Substance: RIOCIGUAT
     Indication: Pulmonary arterial hypertension
     Dosage: DAILY DOSE 4.5 MG
     Route: 048
     Dates: start: 20200123, end: 20200610
  2. ADEMPAS [Suspect]
     Active Substance: RIOCIGUAT
     Indication: Scleroderma
     Dosage: DAILY DOSE 7.5 MG
     Dates: start: 20200611, end: 20210120
  3. ADEMPAS [Suspect]
     Active Substance: RIOCIGUAT
     Indication: Pulmonary arterial hypertension
     Dosage: DAILY DOSE 4.5 MG
     Dates: start: 20210121, end: 20210124
  4. ADEMPAS [Suspect]
     Active Substance: RIOCIGUAT
     Indication: Pulmonary arterial hypertension
     Dosage: DAILY DOSE 3 MG
     Dates: start: 20210125, end: 20210218
  5. MACITENTAN [Concomitant]
     Active Substance: MACITENTAN
     Indication: Pulmonary arterial hypertension
     Dosage: DAILY DOSE 10 MG
     Route: 048
     Dates: start: 20210121, end: 20210212
  6. MACITENTAN [Concomitant]
     Active Substance: MACITENTAN
     Indication: Scleroderma

REACTIONS (2)
  - Pneumonia aspiration [Fatal]
  - Cardiac failure [Unknown]

NARRATIVE: CASE EVENT DATE: 20210307
